FAERS Safety Report 24048250 (Version 8)
Quarter: 2024Q3

REPORT INFORMATION
  Report Type: Report from Study
  Country: DE (occurrence: DE)
  Receive Date: 20240704
  Receipt Date: 20240926
  Transmission Date: 20241017
  Serious: Yes (Other)
  Sender: JOHNSON AND JOHNSON
  Company Number: DE-JNJFOC-20240644296

PATIENT
  Age: 26 Year
  Sex: Female

DRUGS (1)
  1. SPRAVATO [Suspect]
     Active Substance: ESKETAMINE
     Indication: Depression
     Dosage: 84 MG (3 DEVICES), RECEIVED DOSES ON 18-JUN-2024, 21-JUN-2024, 25-JUN-2024, 28-JUN-2024, 02-JUL-2024
     Dates: start: 20240613, end: 20240723

REACTIONS (6)
  - Suicidal ideation [Recovered/Resolved]
  - Discomfort [Recovered/Resolved]
  - Dizziness [Recovered/Resolved]
  - Dissociation [Recovered/Resolved]
  - Hypoaesthesia [Recovered/Resolved]
  - Dysgeusia [Recovered/Resolved]

NARRATIVE: CASE EVENT DATE: 20240613
